FAERS Safety Report 8071084-7 (Version None)
Quarter: 2012Q1

REPORT INFORMATION
  Report Type: 
  Country: None (occurrence: None)
  Receive Date: 20120125
  Receipt Date: 20120120
  Transmission Date: 20120608
  Serious: Yes (Hospitalization, Other)
  Sender: FDA-Public Use
  Company Number: US-PFIZER INC-2012017350

PATIENT
  Sex: Male
  Weight: 59 kg

DRUGS (2)
  1. BACLOFEN [Concomitant]
     Dosage: 20 MG, 3X/DAY
  2. NEURONTIN [Suspect]
     Indication: NERVE INJURY
     Dosage: 3600 MG, DAILY

REACTIONS (4)
  - OEDEMA PERIPHERAL [None]
  - GASTRIC DISORDER [None]
  - WEIGHT DECREASED [None]
  - FATIGUE [None]
